FAERS Safety Report 10100843 (Version 5)
Quarter: 2014Q3

REPORT INFORMATION
  Report Type: Report from Study
  Country: NL (occurrence: NL)
  Receive Date: 20140423
  Receipt Date: 20140801
  Transmission Date: 20150326
  Serious: Yes (Hospitalization)
  Sender: FDA-Public Use
  Company Number: NL-B.I. PHARMACEUTICALS,INC./RIDGEFIELD-2014-BI-17278BI

PATIENT
  Age: 56 Year
  Sex: Male
  Weight: 66.3 kg

DRUGS (15)
  1. BIBW 2992 [Suspect]
     Active Substance: AFATINIB
     Indication: SQUAMOUS CELL CARCINOMA OF HEAD AND NECK
     Route: 048
     Dates: start: 20140109, end: 20140403
  2. THIAMAZOL [Concomitant]
     Active Substance: METHIMAZOLE
     Indication: HYPERTHYROIDISM
     Route: 048
  3. DOXYCYCLINE. [Concomitant]
     Active Substance: DOXYCYCLINE
     Indication: RASH
     Route: 048
     Dates: start: 20140403
  4. CICALFATE [Concomitant]
     Indication: RASH
     Route: 048
     Dates: start: 20140403
  5. LEVOTHYROXINE [Concomitant]
     Active Substance: LEVOTHYROXINE
     Indication: HYPERTHYROIDISM
     Route: 048
  6. NEUTROGENA [Concomitant]
     Indication: RASH
     Dosage: REPARATION INTENSE
     Route: 048
     Dates: start: 20140403
  7. NEUTROGENA [Concomitant]
     Indication: PALMAR-PLANTAR ERYTHRODYSAESTHESIA SYNDROME
  8. METOPROLOL [Concomitant]
     Active Substance: METOPROLOL
     Indication: ANGINA PECTORIS
     Dosage: 47.5 MG
     Route: 048
  9. DOXYCYCLINE. [Concomitant]
     Active Substance: DOXYCYCLINE
     Indication: PALMAR-PLANTAR ERYTHRODYSAESTHESIA SYNDROME
  10. ACETYLSALICYLZUUR [Concomitant]
     Indication: ANGINA PECTORIS
     Dosage: 80 MG
     Route: 048
  11. ATORVASTATINE [Concomitant]
     Active Substance: ATORVASTATIN
     Indication: ANGINA PECTORIS
     Dosage: 40 MG
     Route: 048
  12. ISOSORBIDENITRAAT [Concomitant]
     Indication: ANGINA PECTORIS
     Route: 048
  13. OXAZEPAM. [Concomitant]
     Active Substance: OXAZEPAM
     Indication: RESTLESSNESS
     Route: 048
  14. PARACETAMOL [Concomitant]
     Active Substance: ACETAMINOPHEN
     Indication: OROPHARYNGEAL PAIN
     Route: 048
     Dates: start: 20130106
  15. CICALFATE [Concomitant]
     Indication: PALMAR-PLANTAR ERYTHRODYSAESTHESIA SYNDROME

REACTIONS (1)
  - Anaemia [Recovered/Resolved]

NARRATIVE: CASE EVENT DATE: 20140403
